FAERS Safety Report 6371451-3 (Version None)
Quarter: 2009Q3

REPORT INFORMATION
  Report Type: 
  Country: None (occurrence: None)
  Receive Date: 20090923
  Receipt Date: 20080516
  Transmission Date: 20100115
  Serious: Yes (Other)
  Sender: FDA-Public Use
  Company Number: US-ASTRAZENECA-2007UW14891

PATIENT
  Age: 15350 Day
  Sex: Female

DRUGS (11)
  1. SEROQUEL [Suspect]
     Indication: SLEEP DISORDER
     Dosage: 300-900 MG
     Route: 048
     Dates: start: 20040811
  2. SEROQUEL [Suspect]
     Route: 048
  3. AMBIEN [Concomitant]
     Route: 048
     Dates: start: 20040901
  4. CYMBALTA [Concomitant]
     Dosage: 30-60 MG
     Route: 048
     Dates: start: 20050116
  5. ATIVAN [Concomitant]
     Dosage: 0.5 MG BID PLUS 1 QHS PRN, 0.5 MG TID
     Route: 048
     Dates: start: 20040119
  6. DEPAKOTE ER [Concomitant]
     Dates: start: 20040119, end: 20051015
  7. TOPAMAX [Concomitant]
     Route: 048
     Dates: start: 20040119
  8. EQUETRO [Concomitant]
     Dosage: 200, TWO TIMES A DAY
     Route: 048
     Dates: start: 20051015
  9. RESTORIL [Concomitant]
     Dosage: 20-30 MG
     Route: 048
     Dates: start: 20051221, end: 20061005
  10. KLONOPIN [Concomitant]
     Route: 048
     Dates: start: 20040811
  11. KLONOPIN [Concomitant]
     Route: 048
     Dates: start: 20040901

REACTIONS (1)
  - PANCREATITIS CHRONIC [None]
